FAERS Safety Report 8587792-5 (Version None)
Quarter: 2012Q3

REPORT INFORMATION
  Report Type: 
  Country: None (occurrence: None)
  Receive Date: 20120813
  Receipt Date: 20120801
  Transmission Date: 20120928
  Serious: Yes (Hospitalization)
  Sender: FDA-Public Use
  Company Number: US-BIOGENIDEC-2012BI026804

PATIENT
  Age: 28 Year
  Sex: Female

DRUGS (2)
  1. TYSABRI [Suspect]
     Indication: MULTIPLE SCLEROSIS
     Route: 042
     Dates: start: 20070710, end: 20100709
  2. TYSABRI [Suspect]
     Route: 042
     Dates: start: 20120308

REACTIONS (5)
  - HAND FRACTURE [None]
  - LACERATION [None]
  - FOOT FRACTURE [None]
  - FALL [None]
  - HEAD INJURY [None]
